FAERS Safety Report 20563193 (Version 1)
Quarter: 2022Q1

REPORT INFORMATION
  Report Type: Spontaneous
  Country: US (occurrence: US)
  Receive Date: 20220308
  Receipt Date: 20220308
  Transmission Date: 20220423
  Serious: Yes (Other)
  Sender: FDA-Public Use
  Company Number: US-009507513-2203USA001822

PATIENT
  Sex: Male

DRUGS (1)
  1. TICE BCG [Suspect]
     Active Substance: BACILLUS CALMETTE-GUERIN SUBSTRAIN TICE LIVE ANTIGEN
     Indication: Bladder cancer recurrent

REACTIONS (7)
  - Bladder neoplasm surgery [Unknown]
  - Bladder cancer recurrent [Not Recovered/Not Resolved]
  - Urinary cystectomy [Unknown]
  - Malignant neoplasm progression [Not Recovered/Not Resolved]
  - Adverse event [Unknown]
  - Manufacturing production issue [Unknown]
  - Product availability issue [Unknown]

NARRATIVE: CASE EVENT DATE: 20180101
